FAERS Safety Report 13692317 (Version 3)
Quarter: 2017Q3

REPORT INFORMATION
  Report Type: Spontaneous
  Country: DE (occurrence: DE)
  Receive Date: 20170627
  Receipt Date: 20170914
  Transmission Date: 20171127
  Serious: Yes (Hospitalization, Other)
  Sender: FDA-Public Use
  Company Number: DE-ASTRAZENECA-2017SE65930

PATIENT
  Age: 23558 Day
  Sex: Female

DRUGS (10)
  1. FASLODEX [Suspect]
     Active Substance: FULVESTRANT
     Indication: BREAST CANCER METASTATIC
     Route: 030
     Dates: start: 20170207, end: 20170407
  2. XGEVA [Suspect]
     Active Substance: DENOSUMAB
     Indication: BREAST CANCER METASTATIC
     Dosage: DOSE AND FREQUENCY  UNKNOW
     Route: 065
  3. IBRANCE [Suspect]
     Active Substance: PALBOCICLIB
     Indication: BREAST CANCER FEMALE
     Dosage: 125.0MG UNKNOWN
     Route: 048
     Dates: start: 20170127
  4. IBRANCE [Suspect]
     Active Substance: PALBOCICLIB
     Indication: METASTASES TO LIVER
     Dosage: 125.0MG UNKNOWN
     Route: 048
     Dates: start: 20170127
  5. IBRANCE [Suspect]
     Active Substance: PALBOCICLIB
     Indication: BREAST CANCER METASTATIC
     Dosage: 125.0MG UNKNOWN
     Route: 048
     Dates: start: 20170127
  6. SPIRONOLACTONE. [Concomitant]
     Active Substance: SPIRONOLACTONE
     Route: 048
  7. FASLODEX [Suspect]
     Active Substance: FULVESTRANT
     Indication: METASTASES TO LIVER
     Route: 030
     Dates: start: 20170207, end: 20170407
  8. XGEVA [Suspect]
     Active Substance: DENOSUMAB
     Indication: BREAST CANCER METASTATIC
     Dosage: DOSE AND FREQUENCY  UNKNOW
     Route: 065
  9. TOREM [Concomitant]
     Active Substance: TORSEMIDE
     Route: 048
  10. FASLODEX [Suspect]
     Active Substance: FULVESTRANT
     Indication: BREAST CANCER FEMALE
     Route: 030
     Dates: start: 20170207, end: 20170407

REACTIONS (5)
  - Ascites [Unknown]
  - Acute kidney injury [Recovering/Resolving]
  - Acute hepatic failure [Unknown]
  - Transaminases increased [Recovering/Resolving]
  - Off label use [Unknown]

NARRATIVE: CASE EVENT DATE: 20170427
